FAERS Safety Report 8839907 (Version 1)
Quarter: 2012Q4

REPORT INFORMATION
  Report Type: Spontaneous
  Country: FR (occurrence: None)
  Receive Date: 20121011
  Receipt Date: 20121011
  Transmission Date: 20130627
  Serious: Yes (Hospitalization)
  Sender: FDA-Public Use
  Company Number: 2012000215

PATIENT
  Age: 65 Year
  Sex: Female

DRUGS (6)
  1. ACEON (PERINDOPRIL ERBUMINE) TABLET [Suspect]
     Indication: HYPERTENSION ARTERIAL
     Route: 048
     Dates: start: 20120705, end: 20120803
  2. CLOPIDOGREL [Suspect]
     Indication: PLATELET AGGREGATION
     Route: 048
  3. CRESTOR [Suspect]
     Indication: HYPOLIPIDEMIA
     Route: 048
  4. FOSAVANCE [Suspect]
     Indication: OSTEOPOROSIS
     Route: 048
  5. LEVOTHYROX [Suspect]
     Route: 048
  6. TERALITHE [Suspect]
     Indication: PSYCHOSIS MANIC-DEPRESSIVE
     Route: 048

REACTIONS (6)
  - Dyspnoea exertional [None]
  - Laryngeal dyspnoea [None]
  - Tachypnoea [None]
  - Respiratory alkalosis [None]
  - Anxiety [None]
  - Hyperventilation [None]
